FAERS Safety Report 8121323-9 (Version None)
Quarter: 2012Q1

REPORT INFORMATION
  Report Type: 
  Country: None (occurrence: None)
  Receive Date: 20120208
  Receipt Date: 20120131
  Transmission Date: 20120608
  Serious: Yes (Other)
  Sender: FDA-Public Use
  Company Number: JP-ASTELLAS-2011JP009048

PATIENT
  Sex: Male
  Weight: 13 kg

DRUGS (28)
  1. ANTI-THYMOCYTE GLOBULIN NOS [Concomitant]
     Indication: BONE MARROW CONDITIONING REGIMEN
     Dosage: 3 MG/KG, UNKNOWN/D
     Route: 065
  2. PREDNISOLONE [Concomitant]
     Indication: ENGRAFTMENT SYNDROME
     Dosage: 0.5 MG/KG, UNKNOWN/D
     Route: 065
  3. FLUDARABINE PHOSPHATE [Concomitant]
     Indication: BONE MARROW CONDITIONING REGIMEN
     Dosage: 30 MG/M2, UNKNOWN/D
     Route: 065
  4. METHOTREXATE [Concomitant]
     Indication: PROPHYLAXIS AGAINST GRAFT VERSUS HOST DISEASE
     Route: 065
  5. ATARAX [Concomitant]
     Dosage: 12 MG, UNKNOWN/D
     Route: 042
  6. PROGRAF [Suspect]
     Dosage: 1 MG, BID
     Route: 048
  7. SULFAMETHOXAZOLE AND TRIMETHOPRIM [Concomitant]
     Route: 048
  8. URSO 250 [Concomitant]
     Dosage: 100 MG, TID
     Route: 048
  9. ZOVIRAX [Concomitant]
     Dosage: 400 MG, UNKNOWN/D
     Route: 048
  10. SULFAMETHOXAZOLE [Concomitant]
     Dosage: 1.2 MG, 3XWEEKLY
     Route: 048
  11. PREDNISOLONE [Concomitant]
     Indication: ACUTE GRAFT VERSUS HOST DISEASE
     Dosage: 1 MG/KG, UNKNOWN/D
     Route: 065
  12. LASIX [Concomitant]
     Dosage: 4 MG, UNKNOWN/D
     Route: 042
  13. PROGRAF [Suspect]
     Indication: PROPHYLAXIS AGAINST GRAFT VERSUS HOST DISEASE
     Dosage: 1.2 MG, UNKNOWN/D
     Route: 042
  14. PROGRAF [Suspect]
     Dosage: 0.2 MG, BID
     Route: 048
  15. IMMUNGLOBULIN [Concomitant]
     Route: 065
  16. AMBISOME [Concomitant]
     Dosage: 30 MG, UNKNOWN/D
     Route: 041
  17. AMBISOME [Concomitant]
     Dosage: 10 ML, UNKNOWN/D
     Route: 042
  18. ZOVIRAX [Concomitant]
     Dosage: 10 ML, UNKNOWN/D
     Route: 042
  19. SOLDEM 1 [Concomitant]
     Route: 041
  20. HEPARIN SODIUM [Concomitant]
     Dosage: 1.6 ML, UNKNOWN/D
     Route: 042
  21. NEO MINOPHAGEN C [Concomitant]
     Dosage: 15 ML, UNKNOWN/D
     Route: 042
  22. MELPHALAN HYDROCHLORIDE [Concomitant]
     Indication: BONE MARROW CONDITIONING REGIMEN
     Dosage: 70 MG/M2, UNKNOWN/D
     Route: 065
  23. URSO 250 [Concomitant]
     Dosage: 100 MG, UNKNOWN/D
     Route: 048
  24. PREDNISOLONE [Concomitant]
     Dosage: 2.5 MG, UNKNOWN/D
     Route: 042
  25. FUNGUARD [Concomitant]
     Dosage: 40 MG, UNKNOWN/D
     Route: 041
  26. PN TWIN [Concomitant]
     Dosage: 1 L, UNKNOWN/D
     Route: 041
  27. MULTAMIN [Concomitant]
     Dosage: 1 DF, UNKNOWN/D
     Route: 042
  28. KAYTWO N [Concomitant]
     Dosage: 10 MG, UNKNOWN/D
     Route: 042

REACTIONS (3)
  - ACUTE GRAFT VERSUS HOST DISEASE [None]
  - CYTOMEGALOVIRUS VIRAEMIA [None]
  - DRUG INEFFECTIVE [None]
